FAERS Safety Report 15656187 (Version 1)
Quarter: 2018Q4

REPORT INFORMATION
  Report Type: Spontaneous
  Country: US (occurrence: US)
  Receive Date: 20181126
  Receipt Date: 20181126
  Transmission Date: 20190205
  Serious: Yes (Hospitalization)
  Sender: FDA-Public Use
  Company Number: US-TEVA-2018-US-978688

PATIENT
  Sex: Female

DRUGS (2)
  1. CLONAZEPAM ACTAVIS [Suspect]
     Active Substance: CLONAZEPAM
     Indication: ATTENTION DEFICIT/HYPERACTIVITY DISORDER
  2. CLONAZEPAM ACTAVIS [Suspect]
     Active Substance: CLONAZEPAM
     Indication: ANXIETY
     Route: 065

REACTIONS (14)
  - Shoplifting [Unknown]
  - Disturbance in attention [Unknown]
  - Insomnia [Unknown]
  - Product substitution issue [Unknown]
  - Withdrawal syndrome [Unknown]
  - Hanging [Unknown]
  - Screaming [Unknown]
  - Depression [Unknown]
  - Aggression [Unknown]
  - Skin atrophy [Unknown]
  - Dysphemia [Unknown]
  - Dyspnoea [Unknown]
  - Amnesia [Unknown]
  - Heart rate increased [Unknown]
